FAERS Safety Report 20811547 (Version 2)
Quarter: 2022Q2

REPORT INFORMATION
  Report Type: Report from Study
  Country: DE (occurrence: DE)
  Receive Date: 20220510
  Receipt Date: 20220519
  Transmission Date: 20220720
  Serious: Yes (Hospitalization, Other)
  Sender: FDA-Public Use
  Company Number: DE-BRISTOL-MYERS SQUIBB COMPANY-2022-032964

PATIENT
  Age: 68 Year
  Sex: Female
  Weight: 61 kg

DRUGS (13)
  1. CISPLATIN [Suspect]
     Active Substance: CISPLATIN
     Indication: Non-small cell lung cancer
     Dosage: MOST RECENT DOSE 90.6 MILLIGRAM WAS ON 21 -APR-2022
     Route: 065
     Dates: start: 20220310
  2. PEMETREXED DISODIUM [Suspect]
     Active Substance: PEMETREXED DISODIUM
     Indication: Non-small cell lung cancer
     Dosage: MOST RECENT DOSE: 21-APR-2022
     Route: 065
     Dates: start: 20220331
  3. FOLSON [Concomitant]
     Indication: Prophylaxis
     Dosage: EVERY 24 HOURS
     Route: 048
     Dates: start: 20220228
  4. METOPROLOL [Concomitant]
     Active Substance: METOPROLOL
     Indication: Product used for unknown indication
     Dosage: EVERY 12 HOURS
     Route: 048
     Dates: start: 202109
  5. ANTIMYCOTIC (AMPHO MORONAL) [Concomitant]
     Indication: Prophylaxis
     Dosage: 1 DF= 1 UNIT NOS, THREE TIMES PER DAY
     Route: 062
     Dates: start: 20220421
  6. METAMIZOLE [Concomitant]
     Active Substance: METAMIZOLE
     Indication: Product used for unknown indication
     Dosage: 1 DF= 40 UNIT NOS, FOUR TIMES PER DAY
     Route: 048
     Dates: start: 20220421, end: 20220503
  7. ZOPLICON [Concomitant]
     Indication: Product used for unknown indication
     Dosage: AS NEEDED
     Route: 048
     Dates: start: 20220503
  8. PARACODIN [Concomitant]
     Indication: Product used for unknown indication
     Dosage: TID, 1 DF=16 UNIT NOS
     Route: 048
     Dates: start: 20220214
  9. DEXAMETHASONE [Concomitant]
     Active Substance: DEXAMETHASONE
     Indication: Prophylaxis
     Route: 048
     Dates: start: 20220309, end: 20220504
  10. ANTIEMETICUM (MCP) [Concomitant]
     Indication: Product used for unknown indication
     Dosage: AD LIBITUM
     Route: 048
     Dates: start: 20220331
  11. PANTOZOL [Concomitant]
     Active Substance: PANTOPRAZOLE SODIUM
     Indication: Prophylaxis
     Route: 048
     Dates: start: 20220309
  12. MACROGOL (GLANDOMED) [Concomitant]
     Indication: Prophylaxis
     Dosage: 1 DF=1 UNIT NOS
     Route: 048
     Dates: start: 20220331
  13. LASIX [Concomitant]
     Active Substance: FUROSEMIDE
     Indication: Oedema
     Dosage: DAILY; PER DAY
     Route: 048
     Dates: start: 20220425, end: 20220427

REACTIONS (2)
  - Neutropenia [Recovered/Resolved]
  - Lymphocyte count decreased [Recovered/Resolved]

NARRATIVE: CASE EVENT DATE: 20220503
